FAERS Safety Report 4390902-7 (Version None)
Quarter: 2004Q3

REPORT INFORMATION
  Report Type: 
  Country: None (occurrence: None)
  Receive Date: 20040702
  Receipt Date: 20040702
  Transmission Date: 20050211
  Serious: No
  Sender: FDA-Public Use
  Company Number: None

PATIENT
  Age: 83 Year
  Sex: Female
  Weight: 59 kg

DRUGS (11)
  1. OMEPRAZOLE [Suspect]
     Indication: GASTROOESOPHAGEAL REFLUX DISEASE
     Dosage: 20 MG QHS ORAL
     Route: 048
     Dates: start: 20040529, end: 20040606
  2. PHENYTOIN [Suspect]
     Indication: CONVULSION
     Dosage: 200 MG BID ORAL
     Route: 048
     Dates: start: 20040529, end: 20040602
  3. DONEPEZIL HCL [Concomitant]
  4. DILTIAZEM [Concomitant]
  5. DOCUSATE NA [Concomitant]
  6. HYDROCHLOROTHIAZIDE [Concomitant]
  7. MOM [Concomitant]
  8. BISACODYL [Concomitant]
  9. KCL TAB [Concomitant]
  10. SOAP SUDS ENEMA [Concomitant]
  11. ENSURE [Concomitant]

REACTIONS (1)
  - DRUG TOXICITY [None]
